FAERS Safety Report 20897529 (Version 1)
Quarter: 2022Q2

REPORT INFORMATION
  Report Type: Spontaneous
  Country: FR (occurrence: FR)
  Receive Date: 20220531
  Receipt Date: 20220531
  Transmission Date: 20220721
  Serious: Yes (Other)
  Sender: FDA-Public Use
  Company Number: None

PATIENT
  Age: 47 Year
  Sex: Male

DRUGS (7)
  1. ALCOHOL [Suspect]
     Active Substance: ALCOHOL
     Dosage: 4 TO 6 BEERS, QD
     Route: 048
  2. OXAZEPAM [Suspect]
     Active Substance: OXAZEPAM
     Dosage: 1 DF, TID  + OCCASIONAL OVERCONSUMPTION
     Route: 048
  3. METHADONE [Suspect]
     Active Substance: METHADONE HYDROCHLORIDE
     Dosage: 120 MG, QD
     Route: 048
  4. ZOLPIDEM TARTRATE [Suspect]
     Active Substance: ZOLPIDEM TARTRATE
     Dosage: 1 IN THE EVENING + OCCASIONAL OVERCONSUMPTION
     Route: 048
  5. HEROIN [Suspect]
     Active Substance: DIAMORPHINE
     Dosage: 2 TIMES/WEEK
     Route: 042
  6. COCAINE [Suspect]
     Active Substance: COCAINE
     Dosage: 2 TIMES/WEEK
     Route: 045
  7. COCAINE [Suspect]
     Active Substance: COCAINE
     Dosage: 2 TIMES/WEEK
     Route: 042

REACTIONS (2)
  - Substance use disorder [Not Recovered/Not Resolved]
  - Drug use disorder [Not Recovered/Not Resolved]
